FAERS Safety Report 14271614 (Version 1)
Quarter: 2017Q4

REPORT INFORMATION
  Report Type: Spontaneous
  Country: FR (occurrence: FR)
  Receive Date: 20171211
  Receipt Date: 20171211
  Transmission Date: 20180321
  Serious: Yes (Hospitalization, Other)
  Sender: FDA-Public Use
  Company Number: FR-PFIZER INC-2017521517

PATIENT
  Age: 33 Year
  Sex: Female

DRUGS (2)
  1. KETALAR [Suspect]
     Active Substance: KETAMINE HYDROCHLORIDE
     Route: 042
  2. SPASFON /00934601/ [Suspect]
     Active Substance: PHLOROGLUCINOL

REACTIONS (4)
  - Hypoaesthesia [Unknown]
  - Medication error [Unknown]
  - Loss of consciousness [Unknown]
  - Malaise [Unknown]
